FAERS Safety Report 17524461 (Version 1)
Quarter: 2020Q1

REPORT INFORMATION
  Report Type: Spontaneous
  Country: GB (occurrence: GB)
  Receive Date: 20200310
  Receipt Date: 20200310
  Transmission Date: 20200409
  Serious: Yes (Other)
  Sender: FDA-Public Use
  Company Number: GB-MYLANLABS-2020M1025404

PATIENT
  Age: 33 Year
  Sex: Female
  Weight: 68 kg

DRUGS (3)
  1. FLUOXETINE [Suspect]
     Active Substance: FLUOXETINE HYDROCHLORIDE
     Indication: MIXED ANXIETY AND DEPRESSIVE DISORDER
     Dosage: 20 MILLIGRAM
     Route: 048
     Dates: start: 20190818, end: 20190930
  2. DIAZEPAM. [Concomitant]
     Active Substance: DIAZEPAM
  3. MIRTAZAPINE. [Concomitant]
     Active Substance: MIRTAZAPINE
     Dosage: 45MG INITIALLY REDUCED TO 15MG ON 18/08/2019
     Dates: start: 20190818

REACTIONS (6)
  - Nausea [Unknown]
  - Hypertension [Recovered/Resolved]
  - Serotonin syndrome [Recovered/Resolved]
  - Syncope [Unknown]
  - Palpitations [Recovered/Resolved]
  - Dizziness [Unknown]

NARRATIVE: CASE EVENT DATE: 20190818
